FAERS Safety Report 7610985-8 (Version None)
Quarter: 2011Q3

REPORT INFORMATION
  Report Type: 
  Country: None (occurrence: None)
  Receive Date: 20110715
  Receipt Date: 20110711
  Transmission Date: 20111222
  Serious: Yes (Hospitalization, Other)
  Sender: FDA-Public Use
  Company Number: FR-PFIZER INC-2011155283

PATIENT
  Age: 63 Year
  Sex: Male

DRUGS (7)
  1. RAMIPRIL [Concomitant]
     Dosage: 5 MG, 1X/DAY
     Route: 048
  2. COUMADIN [Suspect]
     Indication: ATRIAL FIBRILLATION
     Dosage: 1 DF, 1X/DAY, LONG TERM
     Route: 048
     Dates: end: 20110524
  3. AMIODARONE [Concomitant]
     Dosage: 1 DF, 1X/DAY
     Route: 048
  4. PLAVIX [Suspect]
     Indication: ATRIAL FIBRILLATION
     Dosage: 75 MG, 1X/DAY
     Route: 048
     Dates: end: 20110524
  5. FUROSEMIDE [Concomitant]
     Dosage: UNK
  6. ATENOLOL [Concomitant]
     Dosage: 50 MG, 1X/DAY
     Route: 048
  7. ATORVASTATIN CALCIUM [Suspect]
     Dosage: 50 MG, 1X/DAY
     Route: 048

REACTIONS (7)
  - INTERNATIONAL NORMALISED RATIO INCREASED [None]
  - MALAISE [None]
  - POLYP [None]
  - MELAENA [None]
  - HYPOTENSION [None]
  - DYSPNOEA [None]
  - HAEMOGLOBIN DECREASED [None]
